FAERS Safety Report 9265169 (Version 1)
Quarter: 2013Q2

REPORT INFORMATION
  Report Type: Spontaneous
  Country: MX (occurrence: MX)
  Receive Date: 20130501
  Receipt Date: 20130501
  Transmission Date: 20140414
  Serious: Yes (Other)
  Sender: FDA-Public Use
  Company Number: MX-PFIZER INC-2013134523

PATIENT
  Age: 36 Year
  Sex: Female
  Weight: 53 kg

DRUGS (7)
  1. CELEBREX [Suspect]
     Indication: PAIN
     Dosage: 1 DF, 1X/DAY
     Route: 048
     Dates: start: 201204
  2. LYRICA [Suspect]
     Indication: FIBROMYALGIA
     Dosage: 75 MG, 1X/DAY
     Route: 048
     Dates: start: 201302
  3. FLUOXETINE HCL [Suspect]
     Dosage: UNK
     Route: 048
     Dates: start: 201204
  4. GABAPENTIN [Suspect]
     Dosage: UNK
     Route: 048
     Dates: start: 201204
  5. DIAZEPAM [Suspect]
     Dosage: UNK
     Route: 048
     Dates: start: 201204
  6. TRAMADOL HCL [Suspect]
     Dosage: UNK
     Route: 048
     Dates: start: 201204
  7. CLONAZEPAM [Suspect]
     Dosage: UNK
     Route: 048
     Dates: start: 201204

REACTIONS (4)
  - Shock [Not Recovered/Not Resolved]
  - Fear [Not Recovered/Not Resolved]
  - Nervous system disorder [Not Recovered/Not Resolved]
  - Skin discolouration [Not Recovered/Not Resolved]
